FAERS Safety Report 5700162-X (Version None)
Quarter: 2008Q2

REPORT INFORMATION
  Report Type: 
  Country: None (occurrence: None)
  Receive Date: 20080410
  Receipt Date: 20080401
  Transmission Date: 20081010
  Serious: Yes (Hospitalization)
  Sender: FDA-Public Use
  Company Number: GB-BAYER-200710511BNE

PATIENT
  Age: 50 Year
  Sex: Male
  Weight: 93 kg

DRUGS (11)
  1. SORAFENIB [Suspect]
     Indication: HEPATIC NEOPLASM MALIGNANT
     Dosage: TOTAL DAILY DOSE: 800 MG
     Route: 048
     Dates: start: 20070314, end: 20070502
  2. SORAFENIB OR PLACEBO [Suspect]
     Indication: HEPATIC NEOPLASM MALIGNANT
     Dosage: TOTAL DAILY DOSE: 800 MG
     Route: 048
     Dates: start: 20060407, end: 20070314
  3. DOXORUBICIN HCL [Suspect]
     Indication: HEPATIC NEOPLASM MALIGNANT
     Route: 042
     Dates: start: 20060804, end: 20060804
  4. INSULIN MIXTARD 30 [Concomitant]
     Indication: DIABETES MELLITUS
     Route: 058
     Dates: start: 19960101
  5. ATORVASTATIN [Concomitant]
     Indication: BLOOD CHOLESTEROL INCREASED
     Route: 048
     Dates: start: 20040101
  6. DIFFLAM [Concomitant]
     Indication: DENTAL DISORDER PROPHYLAXIS
     Dosage: TOTAL DAILY DOSE: 45 ML
     Route: 048
     Dates: start: 20070316, end: 20070404
  7. E45 CREAM [Concomitant]
     Indication: DRY SKIN
     Dates: start: 20060701
  8. PARACETAMOL [Concomitant]
     Indication: BACK PAIN
     Dates: start: 20061004
  9. ATENOLOL [Concomitant]
     Indication: BLOOD PRESSURE INCREASED
     Dates: start: 20061101
  10. NYSTATIN [Concomitant]
     Indication: GLOSSODYNIA
     Dosage: TOTAL DAILY DOSE: 4 ML
     Dates: start: 20070410
  11. MAGNAPEN [Concomitant]
     Indication: INFECTION
     Dosage: TOTAL DAILY DOSE: 2000 MG
     Route: 048
     Dates: start: 20070501, end: 20070502

REACTIONS (1)
  - GANGRENE [None]
